FAERS Safety Report 15578815 (Version 3)
Quarter: 2018Q4

REPORT INFORMATION
  Report Type: Spontaneous
  Country: US (occurrence: US)
  Receive Date: 20181102
  Receipt Date: 20181114
  Transmission Date: 20190205
  Serious: Yes (Hospitalization, Other)
  Sender: FDA-Public Use
  Company Number: US-009507513-1810USA008545

PATIENT
  Age: 27 Year
  Sex: Female
  Weight: 77.55 kg

DRUGS (2)
  1. NEXPLANON [Suspect]
     Active Substance: ETONOGESTREL
     Indication: CONTRACEPTION
     Dosage: 1 IMPLANT (68 MG), UNK
     Route: 059
     Dates: start: 20151006, end: 20181018
  2. NEXPLANON [Suspect]
     Active Substance: ETONOGESTREL
     Dosage: 1 IMPLANT (68 MG), UNK
     Route: 059
     Dates: start: 20181024

REACTIONS (4)
  - Complication associated with device [Recovered/Resolved]
  - Device deployment issue [Recovered/Resolved]
  - Complication of device removal [Recovered/Resolved]
  - Incorrect product administration duration [Unknown]

NARRATIVE: CASE EVENT DATE: 20151006
